FAERS Safety Report 5929800-3 (Version None)
Quarter: 2008Q3

REPORT INFORMATION
  Report Type: 
  Country: None (occurrence: None)
  Receive Date: 20080930
  Receipt Date: 20080722
  Transmission Date: 20090109
  Serious: Yes (Other)
  Sender: FDA-Public Use
  Company Number: 174863USA

PATIENT
  Age: 33 Year
  Sex: Female

DRUGS (1)
  1. DEXAMETHASONE SODIUM POSPHATE [Suspect]
     Indication: URTICARIA
     Dosage: ONE TIME INJECTION (10 MG), INTRAMUSCULAR
     Route: 030
     Dates: start: 20080717, end: 20080717

REACTIONS (3)
  - ANAPHYLACTIC REACTION [None]
  - SYNCOPE [None]
  - UNRESPONSIVE TO STIMULI [None]
